FAERS Safety Report 5586392-9 (Version None)
Quarter: 2008Q1

REPORT INFORMATION
  Report Type: 
  Country: None (occurrence: None)
  Receive Date: 20080110
  Receipt Date: 20080107
  Transmission Date: 20080703
  Serious: Yes (Life-Threatening, Other)
  Sender: FDA-Public Use
  Company Number: PHHO2008DE00627

PATIENT
  Age: 27 Year
  Sex: Male
  Weight: 58 kg

DRUGS (4)
  1. CYCLOSPORINE [Suspect]
     Indication: HEART TRANSPLANT
     Dosage: 85 MG, BID
     Route: 042
     Dates: start: 20071229
  2. PREDNISOLONE [Suspect]
     Indication: HEART TRANSPLANT
     Dosage: 22.5 MG, BID
     Route: 048
     Dates: start: 20071231, end: 20080103
  3. METHYLPREDNISOLONE [Suspect]
     Indication: HEART TRANSPLANT
     Dosage: 187.5 MG, QID
     Route: 042
     Dates: start: 20080103, end: 20080105
  4. MYCOPHENOLATE MOFETIL [Suspect]
     Indication: HEART TRANSPLANT
     Dosage: 1500 MG, BID
     Route: 048
     Dates: start: 20080102, end: 20080106

REACTIONS (4)
  - COLITIS ULCERATIVE [None]
  - GASTROINTESTINAL HAEMORRHAGE [None]
  - HAEMOGLOBIN DECREASED [None]
  - THROMBOCYTOPENIA [None]
